FAERS Safety Report 15968595 (Version 1)
Quarter: 2019Q1

REPORT INFORMATION
  Report Type: Spontaneous
  Country: US (occurrence: US)
  Receive Date: 20190215
  Receipt Date: 20190215
  Transmission Date: 20190418
  Serious: Yes (Other)
  Sender: FDA-Public Use
  Company Number: US-PFIZER INC-2019057776

PATIENT
  Age: 67 Year
  Weight: 94 kg

DRUGS (6)
  1. LYRICA [Suspect]
     Active Substance: PREGABALIN
     Indication: DIABETIC NEUROPATHY
     Dosage: 75 MG, 2X/DAY (ONCE IN MORNING AND ONCE AT NIGHT)
  2. LYRICA [Suspect]
     Active Substance: PREGABALIN
     Indication: FIBROMYALGIA
  3. POTASSIUM [Concomitant]
     Active Substance: POTASSIUM
     Dosage: 8 MG, UNK
  4. PREGABALIN. [Suspect]
     Active Substance: PREGABALIN
     Indication: DIABETIC NEUROPATHY
     Dosage: 50 MG, 2X/DAY
     Route: 048
  5. PREGABALIN. [Suspect]
     Active Substance: PREGABALIN
     Indication: FIBROMYALGIA
     Dosage: 75 MG, UNK
  6. PERCOCET [Concomitant]
     Active Substance: ACETAMINOPHEN\OXYCODONE HYDROCHLORIDE
     Indication: PAIN
     Dosage: UNK (I ONLY TOOK A HALF OF ONE AT NIGHT)

REACTIONS (12)
  - Gait inability [Unknown]
  - Visual impairment [Unknown]
  - Insomnia [Unknown]
  - Drug effect incomplete [Unknown]
  - Inflammation [Unknown]
  - Eye swelling [Unknown]
  - Foot fracture [Unknown]
  - Swelling [Unknown]
  - Swelling face [Unknown]
  - Sensory loss [Unknown]
  - Fall [Unknown]
  - Lip swelling [Unknown]
